FAERS Safety Report 8578989-9 (Version None)
Quarter: 2012Q3

REPORT INFORMATION
  Report Type: 
  Country: None (occurrence: None)
  Receive Date: 20120808
  Receipt Date: 20120801
  Transmission Date: 20120928
  Serious: Yes (Other)
  Sender: FDA-Public Use
  Company Number: JP-PFIZER INC-2012187423

PATIENT
  Sex: Female

DRUGS (1)
  1. CLINDAMYCIN HCL [Suspect]
     Dosage: UNK
     Route: 048
     Dates: start: 20120720

REACTIONS (7)
  - DYSPHONIA [None]
  - THROAT TIGHTNESS [None]
  - DYSPNOEA [None]
  - CHEST DISCOMFORT [None]
  - MALAISE [None]
  - DECREASED APPETITE [None]
  - HYPOACUSIS [None]
